FAERS Safety Report 6396893-1 (Version None)
Quarter: 2009Q4

REPORT INFORMATION
  Report Type: 
  Country: None (occurrence: None)
  Receive Date: 20091012
  Receipt Date: 20090608
  Transmission Date: 20100525
  Serious: No
  Sender: FDA-Public Use
  Company Number: US-ASTRAZENECA-2009UW14736

PATIENT
  Age: 56 Year
  Sex: Female

DRUGS (13)
  1. SYMBICORT [Suspect]
     Indication: COUGH
     Dosage: 80/4.5 UG, 2 PUFFS
     Route: 055
     Dates: start: 20081001
  2. SYMBICORT [Suspect]
     Dosage: 160/4.5, TWO PUFFS
     Route: 055
     Dates: start: 20081201
  3. PROVENTIL-HFA [Concomitant]
  4. LISINOPRIL [Concomitant]
  5. HYDROCHLOROTHIAZIDE [Concomitant]
  6. OMEPRAZOLE [Concomitant]
  7. VITAMIN D [Concomitant]
  8. CALCIUM [Concomitant]
  9. MULTI-VITAMIN [Concomitant]
  10. ASTAPRO [Concomitant]
  11. GLUCOSAMINE [Concomitant]
  12. ALLEGRA [Concomitant]
  13. TESSALON [Concomitant]

REACTIONS (1)
  - LARYNGITIS [None]
